FAERS Safety Report 6754546-1 (Version None)
Quarter: 2010Q2

REPORT INFORMATION
  Report Type: 
  Country: None (occurrence: None)
  Receive Date: 20100603
  Receipt Date: 20100526
  Transmission Date: 20101027
  Serious: Yes (Other)
  Sender: FDA-Public Use
  Company Number: JP-BAXTER-2010BH014543

PATIENT
  Age: 77 Year

DRUGS (2)
  1. ENDOXAN BAXTER [Suspect]
     Indication: BREAST CANCER
     Route: 065
  2. DOXORUBICIN HCL [Suspect]
     Indication: BREAST CANCER
     Route: 065

REACTIONS (1)
  - LEUKOENCEPHALOPATHY [None]
